FAERS Safety Report 7620389-X (Version None)
Quarter: 2011Q3

REPORT INFORMATION
  Report Type: 
  Country: None (occurrence: None)
  Receive Date: 20110718
  Receipt Date: 20110718
  Transmission Date: 20111222
  Serious: Yes (Hospitalization)
  Sender: FDA-Public Use
  Company Number: None

PATIENT
  Age: 67 Year
  Sex: Male
  Weight: 93.893 kg

DRUGS (1)
  1. LEVOTHYROXINE SODIUM [Suspect]
     Indication: HYPOTHYROIDISM
     Dosage: 1/2 TAB X TWO WEEKS
     Route: 048
     Dates: start: 20110510, end: 20110603

REACTIONS (10)
  - GAIT DISTURBANCE [None]
  - MEMORY IMPAIRMENT [None]
  - CONDITION AGGRAVATED [None]
  - CARDIAC FAILURE CONGESTIVE [None]
  - DRUG WITHDRAWAL CONVULSIONS [None]
  - BALANCE DISORDER [None]
  - RHABDOMYOLYSIS [None]
  - FALL [None]
  - CONFUSIONAL STATE [None]
  - DIZZINESS [None]
